FAERS Safety Report 18093102 (Version 1)
Quarter: 2020Q3

REPORT INFORMATION
  Report Type: Spontaneous
  Country: US (occurrence: US)
  Receive Date: 20200730
  Receipt Date: 20200730
  Transmission Date: 20201103
  Serious: Yes (Disabling, Other)
  Sender: FDA-Public Use
  Company Number: US-REGENERON PHARMACEUTICALS, INC.-2020-47460

PATIENT

DRUGS (3)
  1. EYLEA [Suspect]
     Active Substance: AFLIBERCEPT
     Indication: NEOVASCULAR AGE-RELATED MACULAR DEGENERATION
     Dosage: 2 MG, EVERY 8 WEEKS (Q8W), BOTH EYES
     Route: 031
     Dates: start: 20191231
  2. EYLEA [Suspect]
     Active Substance: AFLIBERCEPT
     Dosage: 2 MG, EVERY 8 WEEKS (Q8W), BOTH EYES
     Route: 031
     Dates: start: 20200421, end: 20200421
  3. EYLEA [Suspect]
     Active Substance: AFLIBERCEPT
     Dosage: 2 MG, EVERY 8 WEEKS (Q8W), BOTH EYES
     Route: 031
     Dates: start: 20200618, end: 20200618

REACTIONS (3)
  - Visual acuity reduced [Unknown]
  - Vitritis [Recovering/Resolving]
  - Blindness unilateral [Unknown]

NARRATIVE: CASE EVENT DATE: 20200618
